FAERS Safety Report 8304659-8 (Version None)
Quarter: 2012Q2

REPORT INFORMATION
  Report Type: 
  Country: None (occurrence: None)
  Receive Date: 20120423
  Receipt Date: 20120417
  Transmission Date: 20120825
  Serious: Yes (Hospitalization)
  Sender: FDA-Public Use
  Company Number: PHHY2012FR033758

PATIENT
  Sex: Female

DRUGS (2)
  1. GILENYA [Suspect]
     Indication: MULTIPLE SCLEROSIS
     Dosage: 1 DF, DAILY
     Route: 048
     Dates: start: 20120101, end: 20120401
  2. NEURONTIN [Concomitant]
     Indication: PAIN
     Dosage: UNK UKN, UNK

REACTIONS (3)
  - FACE OEDEMA [None]
  - OEDEMA PERIPHERAL [None]
  - GENERALISED OEDEMA [None]
